FAERS Safety Report 7067767-8 (Version None)
Quarter: 2010Q4

REPORT INFORMATION
  Report Type: 
  Country: None (occurrence: None)
  Receive Date: 20101028
  Receipt Date: 20091216
  Transmission Date: 20110411
  Serious: No
  Sender: FDA-Public Use
  Company Number: A0835409A

PATIENT
  Age: 62 Year
  Sex: Female

DRUGS (11)
  1. SEREVENT [Suspect]
     Indication: ASTHMA
     Dosage: 50MCG TWICE PER DAY
     Route: 055
     Dates: start: 20091208, end: 20091215
  2. FLUTICASONE PROPIONATE [Concomitant]
  3. PROAIR HFA [Concomitant]
  4. QVAR 40 [Concomitant]
  5. ESTRACE [Concomitant]
  6. PRILOSEC [Concomitant]
  7. BUSPAR [Concomitant]
  8. PREDNISONE [Concomitant]
  9. AVELOX [Concomitant]
  10. SYSTANE [Concomitant]
  11. ACETAMINOPHEN [Concomitant]

REACTIONS (8)
  - CHEST PAIN [None]
  - DRY THROAT [None]
  - FEELING ABNORMAL [None]
  - HEADACHE [None]
  - HEART RATE INCREASED [None]
  - MUSCLE SPASMS [None]
  - THROAT IRRITATION [None]
  - TREMOR [None]
